FAERS Safety Report 14181722 (Version 1)
Quarter: 2017Q4

REPORT INFORMATION
  Report Type: Report from Study
  Country: US (occurrence: US)
  Receive Date: 20171113
  Receipt Date: 20171113
  Transmission Date: 20180321
  Serious: Yes (Death, Other)
  Sender: FDA-Public Use
  Company Number: US-ROCHE-1943884

PATIENT

DRUGS (6)
  1. METHYLPREDNISOLONE. [Suspect]
     Active Substance: METHYLPREDNISOLONE
     Indication: PROPHYLAXIS AGAINST TRANSPLANT REJECTION
     Route: 040
  2. CYCLOSPORINE. [Suspect]
     Active Substance: CYCLOSPORINE
     Indication: PROPHYLAXIS AGAINST TRANSPLANT REJECTION
     Route: 065
  3. METHYLPREDNISOLONE. [Suspect]
     Active Substance: METHYLPREDNISOLONE
     Route: 065
  4. MYCOPHENOLATE MOFETIL. [Suspect]
     Active Substance: MYCOPHENOLATE MOFETIL
     Indication: PROPHYLAXIS AGAINST TRANSPLANT REJECTION
     Route: 048
  5. METHYLPREDNISOLONE. [Suspect]
     Active Substance: METHYLPREDNISOLONE
     Route: 065
  6. METHYLPREDNISOLONE. [Suspect]
     Active Substance: METHYLPREDNISOLONE
     Route: 065

REACTIONS (14)
  - Cardiac failure [Unknown]
  - Pneumonia [Unknown]
  - Skin cancer [Unknown]
  - Myocarditis [Unknown]
  - Neoplasm malignant [Fatal]
  - Cytomegalovirus infection [Unknown]
  - Cryptococcosis [Unknown]
  - Infection [Fatal]
  - Squamous cell carcinoma [Unknown]
  - Pneumocystis jirovecii infection [Unknown]
  - Lymphoma [Unknown]
  - Cytomegalovirus viraemia [Unknown]
  - Hepatitis [Unknown]
  - Aspergillus infection [Unknown]
